FAERS Safety Report 24618698 (Version 1)
Quarter: 2024Q4

REPORT INFORMATION
  Report Type: Spontaneous
  Country: US (occurrence: None)
  Receive Date: 20241113
  Receipt Date: 20241113
  Transmission Date: 20250114
  Serious: No
  Sender: Public
  Company Number: None

PATIENT
  Age: 77 Year
  Sex: Female
  Weight: 72 kg

DRUGS (3)
  1. PREDNISOLONE ACETATE [Suspect]
     Active Substance: PREDNISOLONE ACETATE
     Indication: Glaucoma
     Dosage: 1 DOP 4 TIMES A DAY OPHTHALMIC
     Route: 047
     Dates: start: 20240819, end: 20241015
  2. TAPAZOLE [Concomitant]
     Active Substance: METHIMAZOLE
  3. PROPRANOLOL [Concomitant]
     Active Substance: PROPRANOLOL HYDROCHLORIDE

REACTIONS (5)
  - Nasal discomfort [None]
  - Rhinalgia [None]
  - Eye pain [None]
  - Sinus disorder [None]
  - Therapy interrupted [None]

NARRATIVE: CASE EVENT DATE: 20241015
